FAERS Safety Report 5339373-4 (Version None)
Quarter: 2007Q2

REPORT INFORMATION
  Report Type: 
  Country: None (occurrence: None)
  Receive Date: 20070322
  Receipt Date: 20061023
  Transmission Date: 20071010
  Serious: Yes (Other)
  Sender: FDA-Public Use
  Company Number: 200613575BCC

PATIENT
  Age: 28 Year
  Sex: Male
  Weight: 83.9154 kg

DRUGS (1)
  1. ALEVE (CAPLET) [Suspect]
     Indication: ANALGESIC EFFECT
     Dosage: 440 MG, ONCE; ORAL
     Route: 048
     Dates: start: 20060821

REACTIONS (10)
  - ANAPHYLACTIC REACTION [None]
  - DYSPNOEA [None]
  - ERYTHEMA [None]
  - HYPERSENSITIVITY [None]
  - OEDEMA PERIPHERAL [None]
  - PAIN [None]
  - PRURITUS [None]
  - SWELLING FACE [None]
  - TINNITUS [None]
  - URTICARIA [None]
